FAERS Safety Report 6371964-4 (Version None)
Quarter: 2009Q3

REPORT INFORMATION
  Report Type: 
  Country: None (occurrence: None)
  Receive Date: 20090923
  Receipt Date: 20090915
  Transmission Date: 20100115
  Serious: Yes (Other)
  Sender: FDA-Public Use
  Company Number: US-AMGEN-QUU361800

PATIENT
  Sex: Male

DRUGS (4)
  1. ENBREL [Suspect]
     Indication: PSORIASIS
     Route: 058
     Dates: start: 20090105, end: 20090828
  2. COAL TAR [Concomitant]
  3. ZINC [Concomitant]
  4. UNSPECIFIED STEROIDS [Concomitant]
     Route: 061

REACTIONS (3)
  - FATIGUE [None]
  - GAIT DISTURBANCE [None]
  - PERIPHERAL MOTOR NEUROPATHY [None]
